FAERS Safety Report 17718343 (Version 3)
Quarter: 2025Q2

REPORT INFORMATION
  Report Type: Spontaneous
  Country: DE (occurrence: DE)
  Receive Date: 20200428
  Receipt Date: 20250422
  Transmission Date: 20250716
  Serious: Yes (Hospitalization, Other)
  Sender: TEVA
  Company Number: DE-ADRED-04194-01

PATIENT
  Age: 81 Year
  Sex: Male
  Weight: 120 kg

DRUGS (11)
  1. TORSEMIDE [Suspect]
     Active Substance: TORSEMIDE
     Indication: Product used for unknown indication
     Dosage: 1-0-0-0
     Route: 048
  2. TIOTROPIUM BROMIDE [Concomitant]
     Active Substance: TIOTROPIUM BROMIDE
     Indication: Product used for unknown indication
     Dosage: 1-0-0-0
     Route: 055
  3. APIXABAN [Suspect]
     Active Substance: APIXABAN
     Indication: Product used for unknown indication
     Dosage: 1-0-0-0
     Route: 048
  4. METAMIZOLE [Concomitant]
     Active Substance: METAMIZOLE
     Indication: Product used for unknown indication
     Route: 048
  5. OXYCODONE [Concomitant]
     Active Substance: OXYCODONE
     Indication: Product used for unknown indication
     Route: 048
  6. ALLOPURINOL [Concomitant]
     Active Substance: ALLOPURINOL
     Indication: Product used for unknown indication
     Route: 048
  7. FORMOTEROL [Concomitant]
     Active Substance: FORMOTEROL
     Indication: Product used for unknown indication
     Dosage: 12 ?G, 2-0-0-0
     Route: 055
  8. PANTOPRAZOLE [Concomitant]
     Active Substance: PANTOPRAZOLE
     Indication: Product used for unknown indication
     Dosage: 1-0-0-0
     Route: 048
  9. CHOLECALCIFEROL [Concomitant]
     Active Substance: CHOLECALCIFEROL
     Indication: Product used for unknown indication
     Dosage: 1-0-0-0, COLECALCIFEROL (VITAMIN D)
     Route: 048
  10. XIPAMIDE [Suspect]
     Active Substance: XIPAMIDE
     Indication: Product used for unknown indication
     Dosage: 1-0-0-0
     Route: 048
  11. POTASSIUM CITRATE [Suspect]
     Active Substance: POTASSIUM CITRATE
     Indication: Product used for unknown indication
     Dosage: 1-0-0-0
     Route: 048

REACTIONS (6)
  - Urogenital haemorrhage [Unknown]
  - Product monitoring error [Unknown]
  - Therapeutic drug monitoring analysis not performed [Unknown]
  - Labelled drug-drug interaction medication error [Unknown]
  - Anaemia [Unknown]
  - Skin ulcer [Unknown]
